FAERS Safety Report 14375635 (Version 1)
Quarter: 2018Q1

REPORT INFORMATION
  Report Type: Spontaneous
  Country: US (occurrence: US)
  Receive Date: 20180110
  Receipt Date: 20180110
  Transmission Date: 20180509
  Serious: Yes (Life-Threatening)
  Sender: FDA-Public Use
  Company Number: None

PATIENT
  Age: 69 Year
  Sex: Female
  Weight: 56.25 kg

DRUGS (6)
  1. MECLIZINE [Concomitant]
     Active Substance: MECLIZINE HYDROCHLORIDE
  2. OSPHENA [Concomitant]
     Active Substance: OSPEMIFENE
  3. B-6 [Concomitant]
  4. AMOXICILLIN. [Concomitant]
     Active Substance: AMOXICILLIN
  5. VITAMIN B12 [Concomitant]
     Active Substance: CYANOCOBALAMIN
  6. ONDANSETRON. [Suspect]
     Active Substance: ONDANSETRON
     Indication: VOMITING
     Dosage: FREQUENCY - DISSOLVE ON TONGUE 1 TABLET EVERY 8 HR.?ROUTE - DISSOLVE ON TONGUE
     Route: 048
     Dates: start: 20171224, end: 20171225

REACTIONS (2)
  - Chest discomfort [None]
  - Dyspnoea [None]

NARRATIVE: CASE EVENT DATE: 20171224
